FAERS Safety Report 20012794 (Version 3)
Quarter: 2022Q3

REPORT INFORMATION
  Report Type: Spontaneous
  Country: CA (occurrence: CA)
  Receive Date: 20211029
  Receipt Date: 20220920
  Transmission Date: 20221026
  Serious: Yes (Death, Hospitalization, Other)
  Sender: FDA-Public Use
  Company Number: CA-SAMSUNG BIOEPIS-SB-2021-25291

PATIENT
  Age: 79 Year
  Sex: Female
  Weight: 70 kg

DRUGS (9)
  1. INFLIXIMAB [Suspect]
     Active Substance: INFLIXIMAB
     Indication: Rheumatoid arthritis
     Route: 042
  2. INFLIXIMAB [Suspect]
     Active Substance: INFLIXIMAB
     Indication: Colitis ulcerative
     Route: 042
  3. AMLODIPINE [Concomitant]
     Active Substance: AMLODIPINE BESYLATE
     Indication: Hypertension
     Route: 048
  4. CANDESARTAN [Concomitant]
     Active Substance: CANDESARTAN
     Indication: Hypertension
     Route: 048
  5. METHOTREXATE [Concomitant]
     Active Substance: METHOTREXATE
     Indication: Rheumatoid arthritis
     Route: 048
  6. METHOTREXATE [Concomitant]
     Active Substance: METHOTREXATE
     Indication: Immunosuppressant drug therapy
  7. NITROGLYCERIN [Concomitant]
     Active Substance: NITROGLYCERIN
     Indication: Angina pectoris
     Dosage: UNKNOWN, AS REQUIRED
     Route: 060
  8. VITAMIN B12 [Concomitant]
     Active Substance: CYANOCOBALAMIN
     Indication: Product used for unknown indication
     Dosage: UNKNOWN
     Route: 048
  9. VITAMIN C [Concomitant]
     Active Substance: ASCORBIC ACID
     Indication: Product used for unknown indication
     Dosage: UNKNOWN
     Route: 048

REACTIONS (17)
  - Death [Fatal]
  - Anaemia [Fatal]
  - Arthralgia [Fatal]
  - Chest discomfort [Fatal]
  - Colon cancer [Fatal]
  - Diverticulum [Fatal]
  - Faeces discoloured [Fatal]
  - Polyp [Fatal]
  - Post procedural discharge [Fatal]
  - Gastrointestinal carcinoma [Fatal]
  - Dehiscence [Fatal]
  - Haemoglobin decreased [Fatal]
  - Impaired healing [Fatal]
  - Lung neoplasm malignant [Fatal]
  - Small intestine carcinoma [Fatal]
  - Vaginal cancer [Fatal]
  - Off label use [Fatal]
